APPROVED DRUG PRODUCT: MYCELEX
Active Ingredient: CLOTRIMAZOLE
Strength: 1% **Federal Register determination that product was not discontinued or withdrawn for safety or effectiveness reasons**
Dosage Form/Route: SOLUTION;TOPICAL
Application: N018181 | Product #001
Applicant: BAYER HEALTHCARE PHARMACEUTICALS INC
Approved: Approved Prior to Jan 1, 1982 | RLD: Yes | RS: No | Type: DISCN